FAERS Safety Report 12257996 (Version 3)
Quarter: 2021Q4

REPORT INFORMATION
  Report Type: Spontaneous
  Country: ES (occurrence: ES)
  Receive Date: 20160412
  Receipt Date: 20211216
  Transmission Date: 20220303
  Serious: Yes (Hospitalization, Congenital Anomaly, Other)
  Sender: FDA-Public Use
  Company Number: ES-ABBVIE-15P-144-1505627-00

PATIENT
  Sex: Male

DRUGS (1)
  1. VALPROATE SODIUM [Suspect]
     Active Substance: VALPROATE SODIUM
     Indication: Maternal exposure timing unspecified
     Route: 064

REACTIONS (14)
  - Tachypnoea [Unknown]
  - Hypospadias [Unknown]
  - Developmental delay [Not Recovered/Not Resolved]
  - Pulmonary artery stenosis [Recovered/Resolved]
  - Autism spectrum disorder [Not Recovered/Not Resolved]
  - Atrial septal defect [Unknown]
  - Bronchitis [Recovered/Resolved]
  - Anxiety [Unknown]
  - Communication disorder [Unknown]
  - Social problem [Unknown]
  - Disturbance in social behaviour [Unknown]
  - Aphasia [Unknown]
  - Foetal exposure during pregnancy [Unknown]
  - Anger [Unknown]

NARRATIVE: CASE EVENT DATE: 20080505
